FAERS Safety Report 5386821-X (Version None)
Quarter: 2007Q3

REPORT INFORMATION
  Report Type: 
  Country: None (occurrence: None)
  Receive Date: 20070713
  Receipt Date: 20070702
  Transmission Date: 20080115
  Serious: Yes (Death, Hospitalization, Other)
  Sender: FDA-Public Use
  Company Number: US-PFIZER INC-2006151389

PATIENT
  Sex: Female
  Weight: 86.2 kg

DRUGS (5)
  1. BEXTRA [Suspect]
     Indication: PAIN
     Route: 048
     Dates: start: 20020730, end: 20031229
  2. VIOXX [Suspect]
     Indication: OSTEOARTHRITIS
     Route: 048
     Dates: start: 20030101, end: 20031101
  3. TRAMADOL HCL [Concomitant]
     Dates: start: 20041001, end: 20041010
  4. TRIAMTERENE AND HYDROCHLOROTHIAZID ^HARRIS^ [Concomitant]
     Dates: start: 20041001, end: 20041010
  5. WARFARIN SODIUM [Concomitant]
     Dates: start: 20040701, end: 20041001

REACTIONS (2)
  - DEEP VEIN THROMBOSIS [None]
  - MYOCARDIAL INFARCTION [None]
